FAERS Safety Report 8612137-1 (Version None)
Quarter: 2012Q3

REPORT INFORMATION
  Report Type: 
  Country: None (occurrence: None)
  Receive Date: 20120822
  Receipt Date: 20120814
  Transmission Date: 20120928
  Serious: No
  Sender: FDA-Public Use
  Company Number: US-ASTRAZENECA-2011SE23243

PATIENT
  Age: 62 Year
  Sex: Female
  Weight: 54.4 kg

DRUGS (7)
  1. FLURAZEPAM HCL [Concomitant]
  2. SEROQUEL XR [Suspect]
     Indication: BIPOLAR DISORDER
     Route: 048
  3. LAMICTAL [Concomitant]
  4. SEROQUEL XR [Suspect]
     Route: 048
  5. SEROQUEL XR [Suspect]
     Route: 048
     Dates: start: 20080101, end: 20110417
  6. PAXIL [Concomitant]
  7. GENERIC OF VALIUM [Concomitant]

REACTIONS (15)
  - BRADYPHRENIA [None]
  - DECREASED APPETITE [None]
  - DELUSION [None]
  - DIARRHOEA [None]
  - MIGRAINE [None]
  - VOMITING [None]
  - THINKING ABNORMAL [None]
  - NIGHTMARE [None]
  - FEELING JITTERY [None]
  - GAIT DISTURBANCE [None]
  - FALL [None]
  - DRUG DOSE OMISSION [None]
  - INSOMNIA [None]
  - BIPOLAR DISORDER [None]
  - RIB FRACTURE [None]
